FAERS Safety Report 17503664 (Version 1)
Quarter: 2020Q1

REPORT INFORMATION
  Report Type: Spontaneous
  Country: FR (occurrence: FR)
  Receive Date: 20200305
  Receipt Date: 20200305
  Transmission Date: 20200409
  Serious: Yes (Hospitalization)
  Sender: FDA-Public Use
  Company Number: FR-MYLANLABS-2020M1024129

PATIENT
  Age: 84 Year
  Sex: Male

DRUGS (2)
  1. GEMCITABINE. [Suspect]
     Active Substance: GEMCITABINE
     Indication: TRANSITIONAL CELL CARCINOMA
     Route: 065
  2. CARBOPLATIN. [Suspect]
     Active Substance: CARBOPLATIN
     Indication: TRANSITIONAL CELL CARCINOMA
     Route: 065

REACTIONS (11)
  - Haemolytic uraemic syndrome [Recovering/Resolving]
  - General physical health deterioration [Recovering/Resolving]
  - Decubitus ulcer [Recovering/Resolving]
  - Asthenia [Recovering/Resolving]
  - Mental disorder [Recovering/Resolving]
  - Apathy [Recovering/Resolving]
  - Autonomic nervous system imbalance [Recovering/Resolving]
  - Malnutrition [Recovering/Resolving]
  - Fall [Recovering/Resolving]
  - Acute kidney injury [Recovering/Resolving]
  - Psychomotor skills impaired [Recovering/Resolving]
